FAERS Safety Report 9231588 (Version 1)
Quarter: 2013Q2

REPORT INFORMATION
  Report Type: Spontaneous
  Country: IT (occurrence: IT)
  Receive Date: 20130415
  Receipt Date: 20130415
  Transmission Date: 20140414
  Serious: Yes (Hospitalization)
  Sender: FDA-Public Use
  Company Number: IT-ROCHE-1213892

PATIENT
  Age: 38 Year
  Sex: Male

DRUGS (3)
  1. TORADOL [Suspect]
     Indication: BACK PAIN
     Dosage: 10 MG/ML
     Route: 030
     Dates: start: 20120929, end: 20121003
  2. BENTELAN [Suspect]
     Indication: BACK PAIN
     Route: 030
     Dates: start: 20120929, end: 20121003
  3. COUMADIN [Suspect]
     Indication: ANTICOAGULANT THERAPY
     Route: 048
     Dates: start: 20120529, end: 20121003

REACTIONS (1)
  - International normalised ratio increased [Recovered/Resolved]
